FAERS Safety Report 23368148 (Version 1)
Quarter: 2024Q1

REPORT INFORMATION
  Report Type: Spontaneous
  Country: US (occurrence: US)
  Receive Date: 20240105
  Receipt Date: 20240105
  Transmission Date: 20240410
  Serious: Yes (Other)
  Sender: FDA-Public Use
  Company Number: US-STRIDES ARCOLAB LIMITED-2023SP012682

PATIENT
  Age: 77 Year
  Sex: Male

DRUGS (4)
  1. ACYCLOVIR [Suspect]
     Active Substance: ACYCLOVIR
     Indication: Encephalopathy
     Dosage: 400 MG THREE TIMES DAILY
     Route: 065
     Dates: start: 2021
  2. ACYCLOVIR [Suspect]
     Active Substance: ACYCLOVIR
     Indication: Viral infection
     Dosage: DOSE WAS INCREASED TO 400 MG FOUR TIMES PER DAY (QID)
     Route: 065
     Dates: end: 202102
  3. ACYCLOVIR [Suspect]
     Active Substance: ACYCLOVIR
     Dosage: UNK, RESTARTED
     Route: 065
  4. ACYCLOVIR [Suspect]
     Active Substance: ACYCLOVIR
     Dosage: 400 MILLIGRAM, BID
     Route: 065

REACTIONS (2)
  - Drug ineffective for unapproved indication [Unknown]
  - Disease recurrence [Unknown]
